FAERS Safety Report 26154283 (Version 1)
Quarter: 2025Q4

REPORT INFORMATION
  Report Type: Report from Study
  Country: US (occurrence: US)
  Receive Date: 20251215
  Receipt Date: 20251215
  Transmission Date: 20260117
  Serious: No
  Sender: SUNOVION
  Company Number: US-SUMITOMO PHARMA SWITZERLAND GMBH-2025SPA015770

PATIENT
  Age: 68 Year
  Sex: Male

DRUGS (2)
  1. ORGOVYX [Suspect]
     Active Substance: RELUGOLIX
     Indication: Prostate cancer
     Dosage: 360 MG, SINGLE
     Route: 048
     Dates: start: 20251020, end: 20251020
  2. ORGOVYX [Suspect]
     Active Substance: RELUGOLIX
     Dosage: 120 MG, QD
     Route: 048
     Dates: start: 20251021

REACTIONS (8)
  - Arthralgia [Unknown]
  - Constipation [Unknown]
  - Hot flush [Unknown]
  - Renal pain [Unknown]
  - Weight decreased [Unknown]
  - Pollakiuria [Unknown]
  - Micturition urgency [Not Recovered/Not Resolved]
  - Muscle atrophy [Unknown]
